FAERS Safety Report 5104061-6 (Version None)
Quarter: 2006Q3

REPORT INFORMATION
  Report Type: 
  Country: None (occurrence: None)
  Receive Date: 20060911
  Receipt Date: 20060817
  Transmission Date: 20061208
  Serious: Yes (Other)
  Sender: FDA-Public Use
  Company Number: 2006088438

PATIENT
  Age: 68 Year
  Sex: Male

DRUGS (9)
  1. HALCION [Suspect]
     Indication: DRUG USE FOR UNKNOWN INDICATION
     Dosage: 0.125 MG, ORAL
     Route: 048
     Dates: start: 20060601, end: 20060714
  2. HALCION [Suspect]
     Indication: INSOMNIA
     Dosage: 0.125 MG, ORAL
     Route: 048
     Dates: start: 20060601, end: 20060714
  3. NITRAZEPAM [Concomitant]
  4. OPALMON              (LIMAPROST) [Concomitant]
  5. APLACE                    (TROXIPIDE) [Concomitant]
  6. LOXONIN    (LOXOPROFEN SODIUM) [Concomitant]
  7. SULPIRIDE (SULPIRIDE) [Concomitant]
  8. DIAZEPAM [Concomitant]
  9. TIZANIDINE HCL [Concomitant]

REACTIONS (4)
  - BLOOD PRESSURE INCREASED [None]
  - DRUG INEFFECTIVE [None]
  - OCULAR HYPERAEMIA [None]
  - PHARMACEUTICAL PRODUCT COMPLAINT [None]
